FAERS Safety Report 9746565 (Version 1)
Quarter: 2013Q4

REPORT INFORMATION
  Report Type: Spontaneous
  Country: US (occurrence: US)
  Receive Date: 20131211
  Receipt Date: 20131211
  Transmission Date: 20140711
  Serious: Yes (Other)
  Sender: FDA-Public Use
  Company Number: US-ASTRAZENECA-2013SE89901

PATIENT
  Age: 67 Year
  Sex: Female
  Weight: 58.1 kg

DRUGS (4)
  1. CRESTOR [Suspect]
     Route: 048
     Dates: start: 2008, end: 201311
  2. BLOOD PRESSURE PILL [Concomitant]
     Indication: BLOOD PRESSURE ABNORMAL
     Dosage: DAILY
     Route: 048
  3. PREDNISONE [Concomitant]
     Indication: PARAESTHESIA
     Route: 048
  4. VALACYCLOVIR [Concomitant]
     Indication: HERPES ZOSTER
     Route: 048

REACTIONS (6)
  - Herpes zoster [Not Recovered/Not Resolved]
  - Arthritis [Recovered/Resolved]
  - Paraesthesia [Not Recovered/Not Resolved]
  - Dysphonia [Not Recovered/Not Resolved]
  - Condition aggravated [Not Recovered/Not Resolved]
  - Hypoaesthesia [Not Recovered/Not Resolved]
